FAERS Safety Report 21584388 (Version 1)
Quarter: 2022Q4

REPORT INFORMATION
  Report Type: Spontaneous
  Country: US (occurrence: US)
  Receive Date: 20221111
  Receipt Date: 20221111
  Transmission Date: 20230113
  Serious: No
  Sender: FDA-Public Use
  Company Number: US-KARYOPHARM-2022KPT001329

PATIENT

DRUGS (12)
  1. XPOVIO [Suspect]
     Active Substance: SELINEXOR
     Indication: Plasmacytoma
     Dosage: 80 MG, WEEKLY
     Route: 048
     Dates: start: 20221019
  2. ACYCLOVIR [Concomitant]
     Active Substance: ACYCLOVIR
  3. TESTOSTERONE [Concomitant]
     Active Substance: TESTOSTERONE
  4. DEXAMETHASONE [Concomitant]
     Active Substance: DEXAMETHASONE
  5. OMEPRAZOLE [Concomitant]
     Active Substance: OMEPRAZOLE
  6. FARXIGA [Concomitant]
     Active Substance: DAPAGLIFLOZIN PROPANEDIOL
  7. METFORMIN [Concomitant]
     Active Substance: METFORMIN HYDROCHLORIDE
  8. MONTELUKAST [Concomitant]
     Active Substance: MONTELUKAST SODIUM
  9. NOVOLOG [Concomitant]
     Active Substance: INSULIN ASPART
  10. OLANZAPINE [Concomitant]
     Active Substance: OLANZAPINE
  11. ONDANSETRON [Concomitant]
     Active Substance: ONDANSETRON
  12. RYBELSUS [Concomitant]
     Active Substance: SEMAGLUTIDE

REACTIONS (3)
  - Nausea [Unknown]
  - Fatigue [Unknown]
  - Off label use [Unknown]

NARRATIVE: CASE EVENT DATE: 20220101
